FAERS Safety Report 11059467 (Version 1)
Quarter: 2015Q2

REPORT INFORMATION
  Report Type: Report from Study
  Country: US (occurrence: US)
  Receive Date: 20150423
  Receipt Date: 20150423
  Transmission Date: 20150821
  Serious: Yes (Life-Threatening, Hospitalization)
  Sender: FDA-Public Use
  Company Number: US-PFIZER INC-2015136013

PATIENT
  Age: 21 Year
  Sex: Male
  Weight: 63.6 kg

DRUGS (13)
  1. ATIVAN [Concomitant]
     Active Substance: LORAZEPAM
     Indication: SEIZURE
     Dosage: UNK
     Route: 042
     Dates: start: 20091025, end: 20091025
  2. KEPPRA [Concomitant]
     Active Substance: LEVETIRACETAM
     Indication: SEIZURE
     Dosage: 300 MG, BID
     Route: 048
  3. VANCOMYCIN [Concomitant]
     Active Substance: VANCOMYCIN
     Indication: INFECTION PROPHYLAXIS
     Dosage: UNK
     Dates: start: 20091025
  4. MIDAZOLAM [Suspect]
     Active Substance: MIDAZOLAM\MIDAZOLAM HYDROCHLORIDE
     Indication: STATUS EPILEPTICUS
     Dosage: UNK UNK, SINGLE
     Dates: start: 20091025, end: 20091025
  5. TOPAMAX [Concomitant]
     Active Substance: TOPIRAMATE
     Indication: SEIZURE
     Dosage: 300 MG, BID
     Route: 048
  6. VECURONIUM [Concomitant]
     Active Substance: VECURONIUM BROMIDE
     Indication: SEIZURE
     Dosage: UNK
     Route: 042
     Dates: start: 20091025, end: 20091025
  7. CTX [Concomitant]
     Indication: SEIZURE
     Dosage: UNK
     Dates: start: 20091025, end: 20091025
  8. SUCCINYLCHOLINE [Concomitant]
     Active Substance: SUCCINYLCHOLINE
     Dosage: UNK
     Route: 042
     Dates: start: 20091025, end: 20091025
  9. DILANTIN [Suspect]
     Active Substance: PHENYTOIN
  10. VERSED [Concomitant]
     Active Substance: MIDAZOLAM HYDROCHLORIDE
     Indication: SEIZURE
     Dosage: UNK
     Route: 041
     Dates: start: 20091025, end: 20091025
  11. ETOMIDATE. [Concomitant]
     Active Substance: ETOMIDATE
     Dosage: UNK
     Route: 042
     Dates: start: 20091025, end: 20091025
  12. ACYCLOVIR. [Concomitant]
     Active Substance: ACYCLOVIR
     Indication: PROPHYLAXIS
     Dosage: UNK
     Dates: start: 20091025
  13. FOSPHENYTOIN SODIUM. [Suspect]
     Active Substance: FOSPHENYTOIN SODIUM

REACTIONS (2)
  - Coagulopathy [Recovering/Resolving]
  - Thrombocytopenia [Recovering/Resolving]

NARRATIVE: CASE EVENT DATE: 20091025
